FAERS Safety Report 10042242 (Version 1)
Quarter: 2014Q1

REPORT INFORMATION
  Report Type: Report from Study
  Country: US (occurrence: US)
  Receive Date: 20140327
  Receipt Date: 20140327
  Transmission Date: 20141002
  Serious: Yes (Hospitalization)
  Sender: FDA-Public Use
  Company Number: US-JNJFOC-20140316205

PATIENT
  Age: 34 Year
  Sex: Male

DRUGS (3)
  1. SIMPONI [Suspect]
     Indication: COLITIS ULCERATIVE
     Route: 058
     Dates: start: 201401
  2. PREDNISONE [Concomitant]
     Dosage: DOSE- 20MG - 30MG
     Route: 048
  3. PREDNISONE [Concomitant]
     Route: 048

REACTIONS (2)
  - Urinary tract infection [Recovered/Resolved]
  - Drug ineffective [Unknown]
